FAERS Safety Report 8271468-8 (Version None)
Quarter: 2012Q2

REPORT INFORMATION
  Report Type: 
  Country: None (occurrence: None)
  Receive Date: 20120410
  Receipt Date: 20120405
  Transmission Date: 20120825
  Serious: Yes (Hospitalization, Other)
  Sender: FDA-Public Use
  Company Number: FR-PFIZER INC-A02200402898

PATIENT
  Age: 31 Year
  Sex: Female

DRUGS (13)
  1. RULID [Suspect]
     Indication: PYREXIA
     Dosage: 300 MG, 1X/DAY
     Route: 048
     Dates: start: 20040519, end: 20040525
  2. EPIRUBICIN HYDROCHLORIDE [Suspect]
     Indication: BREAST CANCER
     Dosage: 135 MG, OTHER
     Route: 042
     Dates: start: 20040510, end: 20040510
  3. FLUOROURACIL [Suspect]
     Indication: BREAST CANCER
     Dosage: 880 MG, OTHER
     Route: 042
     Dates: start: 20040510, end: 20040510
  4. CYCLOPHOSPHAMIDE [Suspect]
     Indication: BREAST CANCER
     Dosage: 880 MG, OTHER
     Route: 042
     Dates: start: 20040510, end: 20040510
  5. SOLU-MEDROL [Concomitant]
     Indication: PREMEDICATION
     Dosage: UNK
     Dates: start: 20040510, end: 20040510
  6. ZOFRAN [Suspect]
     Indication: PREMEDICATION
     Dosage: 8 MG, UNK
     Dates: start: 20040510, end: 20040511
  7. POLERY ADULTE [Suspect]
     Indication: COUGH
     Dosage: UNK
     Route: 048
     Dates: start: 20040517, end: 20040525
  8. PREDNISOLONE [Concomitant]
     Dosage: UNK
     Dates: start: 20040511, end: 20040513
  9. FLUOROURACIL [Suspect]
     Dosage: UNK
     Route: 042
     Dates: start: 20040419, end: 20040419
  10. EPIRUBICIN HYDROCHLORIDE [Suspect]
     Dosage: UNK
     Route: 042
     Dates: start: 20040419, end: 20040419
  11. CYCLOPHOSPHAMIDE [Suspect]
     Dosage: UNK
     Route: 042
     Dates: start: 20040419, end: 20040419
  12. ACETAMINOPHEN [Suspect]
     Indication: PYREXIA
     Dosage: 500 MG, UNK
     Route: 048
     Dates: start: 20040519, end: 20040525
  13. DESLORATADINE [Suspect]
     Indication: COUGH
     Dosage: UNK
     Route: 048
     Dates: start: 20040517, end: 20040525

REACTIONS (5)
  - HEPATITIS [None]
  - ASPARTATE AMINOTRANSFERASE INCREASED [None]
  - ALANINE AMINOTRANSFERASE INCREASED [None]
  - HEPATIC NECROSIS [None]
  - NEUTROPENIA [None]
